FAERS Safety Report 12106486 (Version 1)
Quarter: 2016Q1

REPORT INFORMATION
  Report Type: Spontaneous
  Country: CH (occurrence: CH)
  Receive Date: 20160223
  Receipt Date: 20160223
  Transmission Date: 20160526
  Serious: Yes (Congenital Anomaly)
  Sender: FDA-Public Use
  Company Number: CH-EAGLE PHARMACEUTICALS, INC.-ELL201508-000142

PATIENT
  Sex: Male

DRUGS (1)
  1. DICLOFENAC SODIUM AND MISOPROSTOL [Suspect]
     Active Substance: DICLOFENAC SODIUM\MISOPROSTOL

REACTIONS (2)
  - Foetal exposure during pregnancy [Unknown]
  - Moebius II syndrome [Unknown]
